FAERS Safety Report 8515634-2 (Version None)
Quarter: 2012Q3

REPORT INFORMATION
  Report Type: 
  Country: None (occurrence: None)
  Receive Date: 20120717
  Receipt Date: 20120712
  Transmission Date: 20120928
  Serious: Yes (Other)
  Sender: FDA-Public Use
  Company Number: PHEH2012US007773

PATIENT
  Sex: Female

DRUGS (5)
  1. ATENOLOL [Concomitant]
     Dosage: UNK UKN, UNK
  2. SYNTHROID [Concomitant]
     Dosage: UNK UKN, UNK
  3. HYDROCHLOROTHIAZIDE [Concomitant]
     Dosage: UNK UKN, UNK
  4. ALORA [Concomitant]
     Dosage: UNK UKN, UNK
     Route: 062
     Dates: start: 20120701
  5. VIVELLE-DOT [Suspect]
     Dosage: 0.05 MG TWICE WEEKLY
     Route: 062
     Dates: start: 20111024, end: 20120701

REACTIONS (5)
  - MEDICATION ERROR [None]
  - CONDITION AGGRAVATED [None]
  - ANXIETY [None]
  - HEADACHE [None]
  - DEPRESSION [None]
